FAERS Safety Report 19432469 (Version 2)
Quarter: 2021Q2

REPORT INFORMATION
  Report Type: Spontaneous
  Country: US (occurrence: US)
  Receive Date: 20210617
  Receipt Date: 20210629
  Transmission Date: 20210717
  Serious: Yes (Other)
  Sender: FDA-Public Use
  Company Number: US-PFIZER INC-2021661971

PATIENT
  Age: 71 Year
  Sex: Female
  Weight: 68.95 kg

DRUGS (1)
  1. GENOTROPIN [Suspect]
     Active Substance: SOMATROPIN
     Indication: EMPTY SELLA SYNDROME
     Dosage: 5 MG, 1X/DAY (5MG ONCE A DAY BY INJECTION)

REACTIONS (7)
  - Malaise [Unknown]
  - Blindness [Unknown]
  - Drug dose omission by device [Unknown]
  - Off label use [Unknown]
  - Weight increased [Unknown]
  - Polyarthritis [Unknown]
  - Device breakage [Unknown]
